FAERS Safety Report 23714540 (Version 2)
Quarter: 2024Q3

REPORT INFORMATION
  Report Type: Spontaneous
  Country: US (occurrence: US)
  Receive Date: 20240406
  Receipt Date: 20240711
  Transmission Date: 20241017
  Serious: Yes (Other)
  Sender: ABBVIE
  Company Number: US-ABBVIE-5704709

PATIENT
  Age: 69 Year
  Sex: Female

DRUGS (15)
  1. LINZESS [Suspect]
     Active Substance: LINACLOTIDE
     Indication: Product used for unknown indication
     Dosage: FORM STRENGTH: 72 MICROGRAM
     Route: 048
  2. AMLODIPINE BESYLATE [Concomitant]
     Active Substance: AMLODIPINE BESYLATE
     Indication: Product used for unknown indication
     Route: 065
  3. ENEMA (SODIUM PHOSPHATE, DIBASIC\SODIUM PHOSPHATE, MONOBASIC) [Concomitant]
     Active Substance: SODIUM PHOSPHATE, DIBASIC\SODIUM PHOSPHATE, MONOBASIC
     Indication: Product used for unknown indication
  4. MIRTAZAPINE [Suspect]
     Active Substance: MIRTAZAPINE
     Indication: Product used for unknown indication
     Route: 065
  5. LOSARTAN POTASSIUM [Concomitant]
     Active Substance: LOSARTAN POTASSIUM
     Indication: Product used for unknown indication
     Route: 065
  6. TUMS [Concomitant]
     Active Substance: CALCIUM CARBONATE
     Indication: Product used for unknown indication
  7. ZOMETA [Suspect]
     Active Substance: ZOLEDRONIC ACID
     Indication: Product used for unknown indication
     Route: 065
  8. ONDANSETRON [Concomitant]
     Active Substance: ONDANSETRON
     Indication: Product used for unknown indication
     Route: 065
  9. PHENERGAN [Concomitant]
     Active Substance: PROMETHAZINE HYDROCHLORIDE
     Indication: Product used for unknown indication
     Route: 065
  10. PEPTO-BISMOL [Concomitant]
     Active Substance: BISMUTH SUBSALICYLATE
     Indication: Product used for unknown indication
  11. PAXLOVID [Concomitant]
     Active Substance: NIRMATRELVIR\RITONAVIR
     Indication: Product used for unknown indication
     Route: 065
  12. Biotene dry mouth [Concomitant]
     Indication: Product used for unknown indication
  13. CABOMETYX [Suspect]
     Active Substance: CABOZANTINIB S-MALATE
     Indication: Hepatocellular carcinoma
     Route: 048
  14. CABOMETYX [Suspect]
     Active Substance: CABOZANTINIB S-MALATE
     Indication: Hepatocellular carcinoma
     Route: 048
     Dates: start: 20240202, end: 20240207
  15. CABOMETYX [Suspect]
     Active Substance: CABOZANTINIB S-MALATE
     Indication: Hepatocellular carcinoma
     Route: 048
     Dates: start: 20231130, end: 20240119

REACTIONS (46)
  - Osteonecrosis of jaw [Unknown]
  - Joint swelling [Unknown]
  - Hydronephrosis [Unknown]
  - Off label use [Unknown]
  - Dry mouth [Unknown]
  - Gingival bleeding [Not Recovered/Not Resolved]
  - Blood urine present [Unknown]
  - Weight decreased [Unknown]
  - Impaired healing [Not Recovered/Not Resolved]
  - Blood bilirubin abnormal [Unknown]
  - Stomatitis [Unknown]
  - Constipation [Unknown]
  - Somnolence [Unknown]
  - Metastases to bone [Recovered/Resolved]
  - Metastases to meninges [Unknown]
  - Decreased appetite [Unknown]
  - Neuralgia [Unknown]
  - Blood chromogranin A increased [Unknown]
  - Gastrooesophageal reflux disease [Unknown]
  - Arthralgia [Unknown]
  - Anaemia [Recovering/Resolving]
  - Joint stiffness [Unknown]
  - Haematoma [Unknown]
  - Wound haemorrhage [Unknown]
  - Cancer pain [Recovered/Resolved]
  - Drug interaction [Unknown]
  - Dry skin [Unknown]
  - Blood alkaline phosphatase increased [Unknown]
  - COVID-19 [Recovering/Resolving]
  - Hepatotoxicity [Unknown]
  - Red blood cell count increased [Unknown]
  - Impaired healing [Not Recovered/Not Resolved]
  - Metastases to central nervous system [Unknown]
  - Increased tendency to bruise [Not Recovered/Not Resolved]
  - Urinary tract infection [Unknown]
  - Epistaxis [Unknown]
  - Urinary retention [Unknown]
  - Gastrointestinal motility disorder [Unknown]
  - Urinary incontinence [Unknown]
  - Metastatic neoplasm [Unknown]
  - Contusion [Not Recovered/Not Resolved]
  - Haematochezia [Unknown]
  - Tumour compression [Unknown]
  - Anxiety [Unknown]
  - Lip dry [Unknown]
  - Gait disturbance [Unknown]

NARRATIVE: CASE EVENT DATE: 20240120
